FAERS Safety Report 15521860 (Version 1)
Quarter: 2018Q4

REPORT INFORMATION
  Report Type: Spontaneous
  Country: US (occurrence: US)
  Receive Date: 20181018
  Receipt Date: 20181018
  Transmission Date: 20190205
  Serious: Yes (Death)
  Sender: FDA-Public Use
  Company Number: None

PATIENT
  Age: 73 Year
  Sex: Female

DRUGS (22)
  1. CEPHALEXIN. [Concomitant]
     Active Substance: CEPHALEXIN
  2. SMZ/TMP [Concomitant]
     Active Substance: SULFAMETHOXAZOLE\TRIMETHOPRIM
  3. PAROXETINE. [Concomitant]
     Active Substance: PAROXETINE
  4. ESTRADIOL. [Concomitant]
     Active Substance: ESTRADIOL
  5. PREDNISONE. [Concomitant]
     Active Substance: PREDNISONE
  6. POTASSIUM CHLORIDE. [Concomitant]
     Active Substance: POTASSIUM CHLORIDE
  7. OXYCODONE [Concomitant]
     Active Substance: OXYCODONE
  8. OXYBUTYNIN. [Concomitant]
     Active Substance: OXYBUTYNIN CHLORIDE
  9. ALPRAZOLAM. [Concomitant]
     Active Substance: ALPRAZOLAM
  10. BUPROPION/FUROSEMIDE [Concomitant]
  11. SIMVASTATIN. [Concomitant]
     Active Substance: SIMVASTATIN
  12. ZOLPIDEM [Concomitant]
     Active Substance: ZOLPIDEM\ZOLPIDEM TARTRATE
  13. AZITHROMYCIN ANHYDROUS. [Concomitant]
     Active Substance: AZITHROMYCIN ANHYDROUS
  14. CARVEDILOL/FOLIC ACID [Concomitant]
  15. LEVOTHYROXIN [Concomitant]
     Active Substance: LEVOTHYROXINE
  16. METHOTREXATE. [Concomitant]
     Active Substance: METHOTREXATE
  17. PROLIA [Suspect]
     Active Substance: DENOSUMAB
     Indication: SENILE OSTEOPOROSIS
     Dosage: ?          OTHER FREQUENCY:Q6M;?
     Route: 058
     Dates: start: 20180331
  18. DULOXETINE. [Concomitant]
     Active Substance: DULOXETINE
  19. GABAPENTIN. [Concomitant]
     Active Substance: GABAPENTIN
  20. CIPROFLOXACIN. [Concomitant]
     Active Substance: CIPROFLOXACIN
  21. LISINOPRIL. [Concomitant]
     Active Substance: LISINOPRIL
  22. NITROFURANTIN [Concomitant]
     Active Substance: NITROFURANTOIN

REACTIONS (1)
  - Death [None]

NARRATIVE: CASE EVENT DATE: 20181017
